FAERS Safety Report 6675099-2 (Version None)
Quarter: 2010Q2

REPORT INFORMATION
  Report Type: 
  Country: None (occurrence: None)
  Receive Date: 20100409
  Receipt Date: 20100408
  Transmission Date: 20101027
  Serious: Yes (Other)
  Sender: FDA-Public Use
  Company Number: IT-ROXANE LABORATORIES, INC.-2010-RO-00396RO

PATIENT
  Age: 38 Year
  Sex: Female

DRUGS (3)
  1. TOPIRAMATE [Suspect]
     Indication: MIGRAINE PROPHYLAXIS
     Dosage: 100 MG
  2. TOPIRAMATE [Suspect]
     Indication: EPILEPSY
     Dosage: 200 MG
  3. CARBAMAZEPINE [Concomitant]
     Indication: EPILEPSY

REACTIONS (1)
  - COUGH [None]
